FAERS Safety Report 18782857 (Version 3)
Quarter: 2022Q1

REPORT INFORMATION
  Report Type: Spontaneous
  Country: US (occurrence: US)
  Receive Date: 20210125
  Receipt Date: 20220303
  Transmission Date: 20220423
  Serious: No
  Sender: FDA-Public Use
  Company Number: US-ALLERGAN-2048559US

PATIENT
  Age: 90 Year
  Sex: Female

DRUGS (5)
  1. RESTASIS [Suspect]
     Active Substance: CYCLOSPORINE
     Indication: Dry eye
     Dosage: UNK
     Route: 047
     Dates: start: 20201211
  2. RESTASIS [Suspect]
     Active Substance: CYCLOSPORINE
     Indication: Dry eye
     Dosage: UNK
     Route: 047
  3. RESTASIS [Suspect]
     Active Substance: CYCLOSPORINE
  4. TRAVATAN [Concomitant]
     Active Substance: TRAVOPROST
     Indication: Glaucoma
  5. unspecifed OTC medications [Concomitant]

REACTIONS (2)
  - Incorrect dose administered [Unknown]
  - Device malfunction [Unknown]
